FAERS Safety Report 12855273 (Version 2)
Quarter: 2016Q4

REPORT INFORMATION
  Report Type: Report from Study
  Country: MW (occurrence: MW)
  Receive Date: 20161017
  Receipt Date: 20161025
  Transmission Date: 20170207
  Serious: Yes (Hospitalization, Other)
  Sender: FDA-Public Use
  Company Number: MW-GILEAD-2016-0237668

PATIENT
  Age: 25 Year
  Sex: Male

DRUGS (3)
  1. EFAVIRENZ/EMTRICITABINE/TENOFOVIR DISOPROXIL FUMARATE [Suspect]
     Active Substance: EFAVIRENZ\EMTRICITABINE\TENOFOVIR DISOPROXIL FUMARATE
     Indication: ACQUIRED IMMUNODEFICIENCY SYNDROME
     Dosage: 600/200/300 MG, ONCE
     Route: 048
     Dates: start: 20160818
  2. BLEOMYCIN [Suspect]
     Active Substance: BLEOMYCIN SULFATE
     Indication: PRODUCT USED FOR UNKNOWN INDICATION
     Dosage: 26.25 IU, Q1MONTH
     Route: 042
     Dates: start: 20160818
  3. VINCRISTINE SULFATE. [Suspect]
     Active Substance: VINCRISTINE SULFATE
     Indication: PRODUCT USED FOR UNKNOWN INDICATION
     Dosage: 2 MG, Q1MONTH
     Route: 042

REACTIONS (1)
  - Bacterial sepsis [Recovering/Resolving]

NARRATIVE: CASE EVENT DATE: 20161003
